FAERS Safety Report 20682218 (Version 1)
Quarter: 2022Q2

REPORT INFORMATION
  Report Type: Spontaneous
  Country: US (occurrence: None)
  Receive Date: 20220407
  Receipt Date: 20220407
  Transmission Date: 20220721
  Serious: Yes (Other)
  Sender: FDA-Public Use
  Company Number: US-Hikma Pharmaceuticals USA Inc.-US-H14001-22-00931

PATIENT
  Sex: Female

DRUGS (1)
  1. EXEMESTANE [Suspect]
     Active Substance: EXEMESTANE
     Indication: Product used for unknown indication
     Dosage: UNKNOWN
     Route: 065

REACTIONS (8)
  - Major depression [Unknown]
  - Feeling abnormal [Unknown]
  - Malaise [Unknown]
  - Head discomfort [Unknown]
  - Irritability [Unknown]
  - Insomnia [Unknown]
  - Hormone level abnormal [Unknown]
  - Off label use [Unknown]
